FAERS Safety Report 17014894 (Version 1)
Quarter: 2019Q4

REPORT INFORMATION
  Report Type: Spontaneous
  Country: US (occurrence: US)
  Receive Date: 20191002
  Receipt Date: 20191002
  Transmission Date: 20200122
  Serious: Yes (Life-Threatening, Hospitalization, Disabling, Other)
  Sender: FDA-Public Use
  Company Number: None

PATIENT
  Age: 26 Year
  Sex: Female
  Weight: 136.08 kg

DRUGS (6)
  1. DEPAKOTE [Suspect]
     Active Substance: DIVALPROEX SODIUM
     Indication: SCHIZOAFFECTIVE DISORDER BIPOLAR TYPE
     Route: 048
     Dates: start: 20050101, end: 20120705
  2. RISPERIDONE. [Concomitant]
     Active Substance: RISPERIDONE
  3. DOCUSATE NA [Concomitant]
     Active Substance: DOCUSATE
  4. DIPHENHYDRAMINE HCL [Concomitant]
     Active Substance: DIPHENHYDRAMINE HYDROCHLORIDE
  5. FERROUS 325 IRON [Concomitant]
  6. RISPERDONE [Concomitant]
     Active Substance: RISPERIDONE

REACTIONS (3)
  - Foetal death [None]
  - Drug dependence [None]
  - Maternal exposure during pregnancy [None]

NARRATIVE: CASE EVENT DATE: 201109
